FAERS Safety Report 4859678-0 (Version None)
Quarter: 2005Q4

REPORT INFORMATION
  Report Type: 
  Country: None (occurrence: None)
  Receive Date: 20051215
  Receipt Date: 20051215
  Transmission Date: 20060501
  Serious: No
  Sender: FDA-Public Use
  Company Number: None

PATIENT
  Sex: Male
  Weight: 64 kg

DRUGS (5)
  1. MERCAPTOPURINE [Suspect]
     Indication: HAEMATOPOIETIC NEOPLASM
     Dosage: SEE IMAGE
     Route: 048
     Dates: start: 20050502
  2. VINCRISTINE [Suspect]
     Dosage: SEE IMAGE
     Route: 042
     Dates: start: 20050502, end: 20051204
  3. DEXAMETHASONE [Suspect]
     Dosage: SEE IMAGE
     Route: 048
     Dates: start: 20050502, end: 20051204
  4. METHOTREXATE [Suspect]
     Dosage: SEE IMAGE
     Route: 048
     Dates: start: 20050502, end: 20051208
  5. COTRIMOXAZOLE DS [Suspect]
     Dosage: SEE IMAGE
     Route: 048
     Dates: start: 20050502, end: 20051214

REACTIONS (4)
  - HERPES ZOSTER [None]
  - MONOPLEGIA [None]
  - NEUROPATHY [None]
  - PAIN [None]
